FAERS Safety Report 25622574 (Version 1)
Quarter: 2025Q3

REPORT INFORMATION
  Report Type: Spontaneous
  Country: US (occurrence: US)
  Receive Date: 20250730
  Receipt Date: 20250730
  Transmission Date: 20251020
  Serious: No
  Sender: PFIZER
  Company Number: US-PFIZER INC-202500153086

PATIENT
  Age: 35 Year
  Sex: Male

DRUGS (2)
  1. NURTEC ODT [Suspect]
     Active Substance: RIMEGEPANT SULFATE
  2. NITRAZEPAM [Suspect]
     Active Substance: NITRAZEPAM

REACTIONS (1)
  - Hypertension [Unknown]
